FAERS Safety Report 9393115 (Version 2)
Quarter: 2013Q3

REPORT INFORMATION
  Report Type: Spontaneous
  Country: CH (occurrence: CH)
  Receive Date: 20130710
  Receipt Date: 20130924
  Transmission Date: 20140515
  Serious: Yes (Hospitalization)
  Sender: FDA-Public Use
  Company Number: CH-JNJFOC-20130618557

PATIENT
  Age: 80 Year
  Sex: Female

DRUGS (8)
  1. DIPIPERON [Suspect]
     Indication: MENTAL DISORDER
     Route: 048
     Dates: start: 20130111, end: 20130111
  2. DIPIPERON [Suspect]
     Indication: MENTAL DISORDER
     Route: 048
     Dates: start: 20130110, end: 20130111
  3. HALDOL [Suspect]
     Indication: PRODUCT USED FOR UNKNOWN INDICATION
     Route: 048
     Dates: start: 20130108, end: 20130110
  4. HALDOL [Suspect]
     Indication: PRODUCT USED FOR UNKNOWN INDICATION
     Route: 048
     Dates: start: 20130104, end: 20130108
  5. CRESTOR [Concomitant]
     Route: 048
  6. PANTOZOL [Concomitant]
     Route: 048
  7. ASPIRIN CARDIO [Concomitant]
     Route: 048
  8. TRIATEC [Concomitant]
     Indication: PRODUCT USED FOR UNKNOWN INDICATION
     Route: 065

REACTIONS (2)
  - Chills [Recovered/Resolved]
  - Disturbance in attention [Recovered/Resolved]
